FAERS Safety Report 6824195-5 (Version None)
Quarter: 2010Q3

REPORT INFORMATION
  Report Type: 
  Country: None (occurrence: None)
  Receive Date: 20100708
  Receipt Date: 20061010
  Transmission Date: 20110219
  Serious: No
  Sender: FDA-Public Use
  Company Number: US-PFIZER INC-2006125828

PATIENT
  Sex: Female

DRUGS (2)
  1. CHANTIX [Suspect]
     Dates: start: 20060101
  2. LUNESTA [Concomitant]

REACTIONS (3)
  - FLATULENCE [None]
  - INITIAL INSOMNIA [None]
  - MIDDLE INSOMNIA [None]
